FAERS Safety Report 20155777 (Version 9)
Quarter: 2024Q3

REPORT INFORMATION
  Report Type: Spontaneous
  Country: US (occurrence: US)
  Receive Date: 20211207
  Receipt Date: 20240926
  Transmission Date: 20241017
  Serious: No
  Sender: PFIZER
  Company Number: US-PFIZER INC-2020091710

PATIENT
  Age: 69 Year
  Sex: Female
  Weight: 63.039 kg

DRUGS (2)
  1. ESTRING [Suspect]
     Active Substance: ESTRADIOL
     Indication: Menopausal symptoms
     Dosage: 7.5 UG/24H (INSERT 1 VAGINAL RING (S) BY VAGINAL ROUTE)
     Route: 067
  2. ESTRING [Suspect]
     Active Substance: ESTRADIOL
     Dosage: 2 MG, 1X/DAY

REACTIONS (2)
  - Circumstance or information capable of leading to device use error [Unknown]
  - Dyslexia [Unknown]
